FAERS Safety Report 9355425 (Version 1)
Quarter: 2013Q2

REPORT INFORMATION
  Report Type: Spontaneous
  Country: FR (occurrence: FR)
  Receive Date: 20130619
  Receipt Date: 20130619
  Transmission Date: 20140414
  Serious: Yes (Hospitalization)
  Sender: FDA-Public Use
  Company Number: FR-ABBOTT-13P-056-1086102-00

PATIENT
  Age: 60 Year
  Sex: Male

DRUGS (6)
  1. HUMIRA [Suspect]
     Indication: ANKYLOSING SPONDYLITIS
     Route: 058
     Dates: start: 20091124
  2. KARDEGIC [Concomitant]
     Indication: PRODUCT USED FOR UNKNOWN INDICATION
  3. TAHOR [Concomitant]
     Indication: PRODUCT USED FOR UNKNOWN INDICATION
  4. TAREG [Concomitant]
     Indication: PRODUCT USED FOR UNKNOWN INDICATION
  5. BISOPROLOL [Concomitant]
     Indication: PRODUCT USED FOR UNKNOWN INDICATION
  6. METFORMINE [Concomitant]
     Indication: PRODUCT USED FOR UNKNOWN INDICATION

REACTIONS (2)
  - Uveitis [Recovered/Resolved]
  - Iridocyclitis [Unknown]
